FAERS Safety Report 6759233-1 (Version None)
Quarter: 2010Q2

REPORT INFORMATION
  Report Type: 
  Country: None (occurrence: None)
  Receive Date: 20100607
  Receipt Date: 20080910
  Transmission Date: 20101027
  Serious: Yes (Other)
  Sender: FDA-Public Use
  Company Number: FR-PFIZER INC-2008077126

PATIENT
  Age: 60 Year
  Sex: Female
  Weight: 52 kg

DRUGS (3)
  1. RELPAX [Suspect]
     Indication: MIGRAINE
     Route: 048
     Dates: start: 20050101
  2. SIBELIUM [Concomitant]
     Route: 048
     Dates: start: 20080423, end: 20080520
  3. LYRICA [Concomitant]
     Route: 048
     Dates: start: 20080228, end: 20080326

REACTIONS (3)
  - DRUG ABUSE [None]
  - DRUG PRESCRIBING ERROR [None]
  - HEADACHE [None]
